FAERS Safety Report 5692831-5 (Version None)
Quarter: 2008Q2

REPORT INFORMATION
  Report Type: 
  Country: None (occurrence: None)
  Receive Date: 20080401
  Receipt Date: 20080319
  Transmission Date: 20081010
  Serious: Yes (Hospitalization)
  Sender: FDA-Public Use
  Company Number: GXKR2008CH02125

PATIENT
  Age: 84 Year
  Sex: Female

DRUGS (3)
  1. CYCLOSPORINE [Suspect]
     Indication: RENAL TRANSPLANT
     Dosage: 1.25 MG/KG,DAY
  2. ESCITALOPRAM OXALATE [Suspect]
     Indication: DEPRESSION
  3. AZATHIOPRINE [Concomitant]

REACTIONS (4)
  - DRUG INTERACTION [None]
  - DRUG LEVEL DECREASED [None]
  - INCORRECT DOSE ADMINISTERED [None]
  - SEROTONIN SYNDROME [None]
